FAERS Safety Report 15895382 (Version 1)
Quarter: 2019Q1

REPORT INFORMATION
  Report Type: Spontaneous
  Country: US (occurrence: US)
  Receive Date: 20190131
  Receipt Date: 20190131
  Transmission Date: 20190417
  Serious: No
  Sender: FDA-Public Use
  Company Number: US-TEVA-2019-US-997998

PATIENT

DRUGS (1)
  1. TEVA LETROZOLE [Suspect]
     Active Substance: LETROZOLE
     Route: 065

REACTIONS (4)
  - Alopecia [Unknown]
  - Arthralgia [Unknown]
  - Flushing [Unknown]
  - Hot flush [Unknown]
